FAERS Safety Report 17890803 (Version 2)
Quarter: 2020Q3

REPORT INFORMATION
  Report Type: Report from Study
  Country: US (occurrence: US)
  Receive Date: 20200612
  Receipt Date: 20200702
  Transmission Date: 20201103
  Serious: Yes (Hospitalization)
  Sender: FDA-Public Use
  Company Number: US-ADAMAS PHARMA, LLC-2020ADA01361

PATIENT
  Sex: Female

DRUGS (9)
  1. RASAGILINE. [Concomitant]
     Active Substance: RASAGILINE
  2. INBRIJA [Concomitant]
     Active Substance: LEVODOPA
  3. RYTARY [Concomitant]
     Active Substance: CARBIDOPA\LEVODOPA
  4. PILOCARPINE. [Concomitant]
     Active Substance: PILOCARPINE
  5. NUPLAZID [Concomitant]
     Active Substance: PIMAVANSERIN TARTRATE
  6. GOCOVRI [Suspect]
     Active Substance: AMANTADINE
     Indication: DYSKINESIA
     Dosage: 274 MG, 1X/DAY AT BEDTIME
     Route: 048
     Dates: start: 20190308, end: 2020
  7. AMANTADINE. [Concomitant]
     Active Substance: AMANTADINE HYDROCHLORIDE
  8. ASPIRIN LOW DOSE [Concomitant]
     Active Substance: ASPIRIN
  9. VITAMIN D [Concomitant]
     Active Substance: VITAMIN D NOS

REACTIONS (3)
  - Parkinson^s disease [Recovered/Resolved]
  - Mobility decreased [Recovered/Resolved]
  - Mental disorder [Recovered/Resolved]
